FAERS Safety Report 7111433-7 (Version None)
Quarter: 2010Q4

REPORT INFORMATION
  Report Type: 
  Country: None (occurrence: None)
  Receive Date: 20101118
  Receipt Date: 20100609
  Transmission Date: 20110411
  Serious: Yes (Other)
  Sender: FDA-Public Use
  Company Number: US-PFIZER INC-2010073101

PATIENT
  Sex: Female

DRUGS (2)
  1. ZYVOX [Suspect]
     Dosage: UNK
  2. DRUG, UNSPECIFIED [Interacting]
     Indication: SEROTONIN SYNDROME
     Dosage: UNK

REACTIONS (1)
  - DRUG INTERACTION [None]
